FAERS Safety Report 6644948-6 (Version None)
Quarter: 2010Q1

REPORT INFORMATION
  Report Type: 
  Country: None (occurrence: None)
  Receive Date: 20100322
  Receipt Date: 20100310
  Transmission Date: 20100710
  Serious: Yes (Other)
  Sender: FDA-Public Use
  Company Number: PHEH2009US17757

PATIENT
  Sex: Female
  Weight: 58.05 kg

DRUGS (3)
  1. RECLAST [Suspect]
     Indication: OSTEOPOROSIS
     Dosage: 5 MG, UNK
     Dates: start: 20090717, end: 20090717
  2. COUMADIN [Concomitant]
     Dosage: UNK, UNK
     Route: 065
  3. TOPROL-XL [Concomitant]
     Dosage: UNK, UNK
     Route: 065

REACTIONS (7)
  - ALOPECIA [None]
  - ARTHRALGIA [None]
  - DEPRESSION [None]
  - INSOMNIA [None]
  - MUSCULOSKELETAL PAIN [None]
  - NECK PAIN [None]
  - STRESS [None]
